FAERS Safety Report 7783012-X (Version None)
Quarter: 2011Q3

REPORT INFORMATION
  Report Type: 
  Country: None (occurrence: None)
  Receive Date: 20110928
  Receipt Date: 20110923
  Transmission Date: 20111222
  Serious: Yes (Other)
  Sender: FDA-Public Use
  Company Number: US-PFIZER INC-2011227363

PATIENT
  Sex: Female

DRUGS (2)
  1. GABAPENTIN [Suspect]
     Indication: TENSION
     Dosage: 100 MG, 3X/DAY
     Route: 048
     Dates: start: 20110427, end: 20110919
  2. GABAPENTIN [Suspect]
     Indication: MYALGIA

REACTIONS (4)
  - PANIC ATTACK [None]
  - SUICIDAL IDEATION [None]
  - ABDOMINAL PAIN UPPER [None]
  - CRYING [None]
